FAERS Safety Report 4332074-0 (Version None)
Quarter: 2004Q2

REPORT INFORMATION
  Report Type: 
  Country: None (occurrence: None)
  Receive Date: 20040405
  Receipt Date: 20040129
  Transmission Date: 20050107
  Serious: Yes (Disabling)
  Sender: FDA-Public Use
  Company Number: FR-ROCHE-357586

PATIENT
  Age: 47 Year
  Sex: Male
  Weight: 60 kg

DRUGS (4)
  1. PEGASYS [Suspect]
     Indication: HEPATITIS C
     Route: 058
     Dates: start: 20030519, end: 20040119
  2. REBETOL [Suspect]
     Indication: HEPATITIS C
     Route: 065
     Dates: start: 20030519, end: 20040119
  3. ZOLPIDEM TARTRATE [Concomitant]
     Indication: INSOMNIA
     Route: 048
     Dates: start: 20030611, end: 20040115
  4. ACETAMINOPHEN [Concomitant]
     Route: 048
     Dates: start: 20030519

REACTIONS (2)
  - POLYARTHRITIS [None]
  - URTICARIA [None]
